FAERS Safety Report 4966129-4 (Version None)
Quarter: 2006Q2

REPORT INFORMATION
  Report Type: 
  Country: None (occurrence: None)
  Receive Date: 20060403
  Receipt Date: 20060323
  Transmission Date: 20061013
  Serious: Yes (Death)
  Sender: FDA-Public Use
  Company Number: 163-20785-04080234

PATIENT
  Age: 63 Year
  Sex: Female

DRUGS (12)
  1. THALOMID [Suspect]
     Indication: MULTIPLE MYELOMA
     Dosage: SEE IMAGE
     Route: 048
     Dates: start: 20030101, end: 20040501
  2. THALOMID [Suspect]
     Indication: MULTIPLE MYELOMA
     Dosage: SEE IMAGE
     Route: 048
     Dates: start: 20051011, end: 20051216
  3. PAMIDRONATE DISODIUM [Concomitant]
  4. ADVAIR DISKUS 100/50 [Concomitant]
  5. COMBIVENT [Concomitant]
  6. PROVENTIL SOLUTION (SALBUTAMOL SULFATE) [Concomitant]
  7. NORVASC [Concomitant]
  8. ATIVAN [Concomitant]
  9. PROCRIT [Concomitant]
  10. PERCOCET [Concomitant]
  11. PREDNISONE [Concomitant]
  12. OXYGEN [Concomitant]

REACTIONS (11)
  - ABDOMINAL DISTENSION [None]
  - BREAST SWELLING [None]
  - BREAST TENDERNESS [None]
  - CHRONIC OBSTRUCTIVE PULMONARY DISEASE [None]
  - DISEASE PROGRESSION [None]
  - FLUID RETENTION [None]
  - HYPERTROPHY BREAST [None]
  - HYPOAESTHESIA [None]
  - MULTIPLE MYELOMA [None]
  - NEUROPATHY PERIPHERAL [None]
  - PARAESTHESIA [None]
